FAERS Safety Report 15926574 (Version 3)
Quarter: 2019Q1

REPORT INFORMATION
  Report Type: Spontaneous
  Country: BR (occurrence: BR)
  Receive Date: 20190206
  Receipt Date: 20190215
  Transmission Date: 20190417
  Serious: Yes (Disabling, Other)
  Sender: FDA-Public Use
  Company Number: BR-ABBVIE-19S-020-2648015-00

PATIENT
  Age: 49 Year
  Sex: Female
  Weight: 61 kg

DRUGS (1)
  1. VIEKIRA PAK [Suspect]
     Active Substance: DASABUVIR\OMBITASVIR\PARITAPREVIR\RITONAVIR
     Indication: HEPATITIS C
     Route: 048
     Dates: end: 20190109

REACTIONS (24)
  - Hypoaesthesia [Unknown]
  - Aspartate aminotransferase abnormal [Unknown]
  - Alanine aminotransferase abnormal [Unknown]
  - Dysgeusia [Unknown]
  - Vision blurred [Unknown]
  - Asthenia [Unknown]
  - Iron metabolism disorder [Unknown]
  - Anaemia [Unknown]
  - Aphasia [Unknown]
  - Contusion [Unknown]
  - Adverse drug reaction [Unknown]
  - Tremor [Recovering/Resolving]
  - Dry mouth [Unknown]
  - Paraesthesia [Unknown]
  - Paraesthesia [Not Recovered/Not Resolved]
  - Muscle spasms [Unknown]
  - Arrhythmia [Unknown]
  - Blood glucose abnormal [Unknown]
  - Platelet disorder [Unknown]
  - Pain [Unknown]
  - Product label issue [Unknown]
  - Nervous system disorder [Unknown]
  - Visual impairment [Unknown]
  - Headache [Unknown]

NARRATIVE: CASE EVENT DATE: 201812
